FAERS Safety Report 9200318 (Version 1)
Quarter: 2013Q1

REPORT INFORMATION
  Report Type: Spontaneous
  Country: US (occurrence: US)
  Receive Date: 20130329
  Receipt Date: 20130329
  Transmission Date: 20140127
  Serious: No
  Sender: FDA-Public Use
  Company Number: US-PFIZER INC-2013098296

PATIENT
  Age: 63 Year
  Sex: Male
  Weight: 80.73 kg

DRUGS (6)
  1. VIAGRA [Suspect]
     Indication: ERECTILE DYSFUNCTION
     Dosage: 100 MG, AS NEEDED
     Route: 048
  2. NORVIR [Concomitant]
     Dosage: 100 MG, UNK
  3. REYATAZ [Concomitant]
     Dosage: 300 MG, UNK
  4. TRUVADA [Concomitant]
     Dosage: UNK
  5. NORVASC [Concomitant]
     Indication: HYPERTENSION
     Dosage: 10 MG, UNK
  6. FOSINOPRIL [Concomitant]
     Indication: HYPERTENSION
     Dosage: 40 MG, UNK

REACTIONS (1)
  - Visual impairment [Unknown]
